FAERS Safety Report 23151562 (Version 1)
Quarter: 2023Q4

REPORT INFORMATION
  Report Type: Spontaneous
  Country: US (occurrence: US)
  Receive Date: 20231107
  Receipt Date: 20231107
  Transmission Date: 20240110
  Serious: No
  Sender: FDA-Public Use
  Company Number: US-Accord-375969

PATIENT
  Sex: Female

DRUGS (1)
  1. LEVOTHYROXINE SODIUM [Suspect]
     Active Substance: LEVOTHYROXINE SODIUM
     Indication: Thyroidectomy
     Dosage: 100 MCG BY MOUTH ONCE DAILY

REACTIONS (6)
  - Insomnia [Unknown]
  - Feeling jittery [Unknown]
  - Nervousness [Unknown]
  - Feeling abnormal [Unknown]
  - Influenza [Unknown]
  - Product substitution issue [Unknown]
